FAERS Safety Report 24581502 (Version 3)
Quarter: 2025Q4

REPORT INFORMATION
  Report Type: Spontaneous
  Country: CN (occurrence: CN)
  Receive Date: 20241105
  Receipt Date: 20251219
  Transmission Date: 20260118
  Serious: Yes (Death)
  Sender: JOHNSON AND JOHNSON
  Company Number: CN-JNJFOC-20241101792

PATIENT
  Age: 69 Year
  Sex: Female

DRUGS (12)
  1. DARATUMUMAB [Suspect]
     Active Substance: DARATUMUMAB
     Indication: Primary amyloidosis
     Dosage: 16 MG/KG (STANDARD DOSE) WAS DILUTED INTO NORMAL SALINE 250 TO 1000 ML
  2. BORTEZOMIB [Suspect]
     Active Substance: BORTEZOMIB
     Indication: Primary amyloidosis
     Dosage: BD REGIMEN (BORTEZOMIB, 1.3 MG/M2 ONCE WEEKLY?4 TIMES +DEXAMETHASONE, 20 TO 40 MG ONCE WEEKLY?4 TIMES)
  3. ACETAMINOPHEN [Suspect]
     Active Substance: ACETAMINOPHEN
     Indication: Primary amyloidosis
     Route: 048
  4. DEXAMETHASONE [Suspect]
     Active Substance: DEXAMETHASONE
     Indication: Primary amyloidosis
     Route: 042
  5. DEXAMETHASONE [Suspect]
     Active Substance: DEXAMETHASONE
     Indication: Premedication
     Dosage: 20 TO 40 MG??FREQUENCY:4 TIMES
     Route: 042
  6. PROMETHAZINE [Suspect]
     Active Substance: PROMETHAZINE HYDROCHLORIDE
     Indication: Primary amyloidosis
     Route: 030
  7. PROMETHAZINE [Suspect]
     Active Substance: PROMETHAZINE HYDROCHLORIDE
     Indication: Premedication
  8. MONTELUKAST SODIUM [Suspect]
     Active Substance: MONTELUKAST SODIUM
     Indication: Product used for unknown indication
  9. CYCLOPHOSPHAMIDE [Suspect]
     Active Substance: CYCLOPHOSPHAMIDE
     Indication: Primary amyloidosis
     Dosage: FREQUENCY:3 TIMES
  10. IXAZOMIB [Suspect]
     Active Substance: IXAZOMIB
     Indication: Primary amyloidosis
     Dosage: ID REGIMEN (IXAZOMIB, 3 TO 4 MG ONCE WEEKLY?3 TIMES +DEXAMETHASONE, 20 TO 40 MG ONCE WEEKLY?4 TIMES), IRD REGIMEN (IXAZOMIB, 3 TO 4 MG ONCE WEEKLY?3 TIMES +LENALIDOMIDE,?WITH DOSE ADJUSTED BASED ON RENAL FUNCTION, ORAL, FOR 21 DAYS ON AND 7 DAYS OFF+ DEXAMETHASONE, 20 TO 40 MG ONCE WEEKLY?4 TIMES),
  11. LENALIDOMIDE [Suspect]
     Active Substance: LENALIDOMIDE
     Indication: Primary amyloidosis
     Dosage: WITH DOSE ADJUSTED BASED ON RENAL FUNCTION, FOR 21 DAYS ON AND 7 DAYS OFF
     Route: 048
  12. DOXORUBICIN [Suspect]
     Active Substance: DOXORUBICIN
     Dosage: 20 TO 30 MG/M2??FREQUENCY:1 TIME

REACTIONS (3)
  - Sudden cardiac death [Fatal]
  - Product use in unapproved indication [Unknown]
  - Off label use [Unknown]
